FAERS Safety Report 25230023 (Version 2)
Quarter: 2025Q2

REPORT INFORMATION
  Report Type: Spontaneous
  Country: JP (occurrence: JP)
  Receive Date: 20250423
  Receipt Date: 20250625
  Transmission Date: 20250717
  Serious: Yes (Death)
  Sender: MERCK SHARP & DOHME LLC
  Company Number: JP-009507513-2278218

PATIENT
  Age: 82 Year
  Sex: Male
  Weight: 63.8 kg

DRUGS (2)
  1. KEYTRUDA [Suspect]
     Active Substance: PEMBROLIZUMAB
     Indication: Malignant neoplasm of renal pelvis
     Route: 041
     Dates: start: 20241211, end: 20250331
  2. PADCEV [Suspect]
     Active Substance: ENFORTUMAB VEDOTIN-EJFV
     Indication: Malignant neoplasm of renal pelvis
     Route: 042
     Dates: start: 20241211, end: 20250214

REACTIONS (4)
  - Cytokine release syndrome [Fatal]
  - Haemophagocytic lymphohistiocytosis [Fatal]
  - Rash [Fatal]
  - Therapy partial responder [Unknown]

NARRATIVE: CASE EVENT DATE: 20241220
